FAERS Safety Report 8780477 (Version 1)
Quarter: 2012Q4

REPORT INFORMATION
  Report Type: Spontaneous
  Country: US (occurrence: None)
  Receive Date: 20120906
  Receipt Date: 20120906
  Transmission Date: 20130627
  Serious: Yes (Disabling, Other)
  Sender: FDA-Public Use
  Company Number: None

PATIENT
  Age: 9 Year
  Sex: Male
  Weight: 26.76 kg

DRUGS (1)
  1. STRATTERA [Suspect]
     Indication: ADD
     Route: 048
     Dates: start: 20120726, end: 20120901

REACTIONS (1)
  - Head titubation [None]
